FAERS Safety Report 16290441 (Version 1)
Quarter: 2019Q2

REPORT INFORMATION
  Report Type: Spontaneous
  Country: GB (occurrence: GB)
  Receive Date: 20190509
  Receipt Date: 20190509
  Transmission Date: 20190711
  Serious: Yes (Other)
  Sender: FDA-Public Use
  Company Number: GB-TEVA-2019-GB-1045280

PATIENT

DRUGS (2)
  1. SERTRALINE [Suspect]
     Active Substance: SERTRALINE HYDROCHLORIDE
     Indication: DEPRESSION
     Dosage: 50 MILLIGRAM, TWO TIMES A DAY
     Route: 048
     Dates: start: 20170713
  2. VITAMIN D NOS [Concomitant]
     Active Substance: VITAMIN D NOS
     Indication: PRODUCT USED FOR UNKNOWN INDICATION

REACTIONS (10)
  - Visual impairment [Not Recovered/Not Resolved]
  - Eye disorder [Unknown]
  - Epinephrine decreased [Unknown]
  - Cortisol abnormal [Unknown]
  - Alopecia [Recovered/Resolved]
  - Fatigue [Unknown]
  - Tunnel vision [Not Recovered/Not Resolved]
  - Yawning [Unknown]
  - Ataxia [Not Recovered/Not Resolved]
  - Endocrine disorder [Recovered/Resolved]

NARRATIVE: CASE EVENT DATE: 201706
